FAERS Safety Report 7470893-2 (Version None)
Quarter: 2011Q2

REPORT INFORMATION
  Report Type: 
  Country: None (occurrence: None)
  Receive Date: 20110502
  Receipt Date: 20110418
  Transmission Date: 20111010
  Serious: Yes (Hospitalization)
  Sender: FDA-Public Use
  Company Number: KR-JNJFOC-20110407774

PATIENT
  Age: 64 Year
  Sex: Male
  Weight: 68.5 kg

DRUGS (3)
  1. JANUMET [Concomitant]
  2. AMLODIPINE BESYLATE AND OLMESARTAN MEDOXOMIL [Suspect]
  3. DACOGEN [Suspect]
     Indication: MYELODYSPLASTIC SYNDROME
     Dosage: CYCLE 1
     Dates: start: 20110323

REACTIONS (4)
  - ANGINA PECTORIS [None]
  - PLATELET TRANSFUSION [None]
  - PACKED RED BLOOD CELL TRANSFUSION [None]
  - MYOCARDIAL ISCHAEMIA [None]
